FAERS Safety Report 5142212-8 (Version None)
Quarter: 2006Q4

REPORT INFORMATION
  Report Type: 
  Country: None (occurrence: None)
  Receive Date: 20061102
  Receipt Date: 20061024
  Transmission Date: 20070319
  Serious: Yes (Death, Other)
  Sender: FDA-Public Use
  Company Number: US-AVENTIS-200618867US

PATIENT

DRUGS (1)
  1. TAXOTERE [Suspect]
     Indication: LUNG NEOPLASM MALIGNANT
     Dosage: DOSE: UNK

REACTIONS (4)
  - CATHETER SITE ERYTHEMA [None]
  - ESCHAR [None]
  - LUNG NEOPLASM MALIGNANT [None]
  - SKIN NECROSIS [None]
